FAERS Safety Report 8103914-4 (Version None)
Quarter: 2012Q1

REPORT INFORMATION
  Report Type: 
  Country: None (occurrence: None)
  Receive Date: 20120201
  Receipt Date: 20120126
  Transmission Date: 20120608
  Serious: Yes (Hospitalization)
  Sender: FDA-Public Use
  Company Number: PHHO2011DE021714

PATIENT
  Sex: Male

DRUGS (11)
  1. PANTOPRAZOLE [Concomitant]
     Indication: PROPHYLAXIS
     Dosage: 20 MG, BID
  2. PREDNISONE TAB [Concomitant]
     Indication: RENAL TRANSPLANT
     Dosage: 10 MG, QD
     Dates: start: 20111109
  3. AGGRENOX [Concomitant]
     Indication: PROPHYLAXIS
     Dosage: 250/25 MG
  4. VALCYTE [Concomitant]
     Indication: PROPHYLAXIS
     Dosage: 450 MG, QD
     Dates: start: 20111110, end: 20111223
  5. NO TREATMENT RECEIVED [Suspect]
     Indication: RENAL TRANSPLANT
     Dosage: NO TREATMENT
  6. CORTIMENT [Concomitant]
     Indication: PROPHYLAXIS
     Dosage: 450 MG, TID FOR THREE WEEK
     Dates: start: 20111109
  7. SANDIMMUNE [Suspect]
     Indication: RENAL TRANSPLANT
     Dosage: 225 MG, BID
     Dates: start: 20111107
  8. MYFORTIC [Suspect]
     Indication: RENAL TRANSPLANT
     Dosage: 2160 UKN, UNK
     Dates: start: 20111107, end: 20111223
  9. SIMULECT [Suspect]
     Indication: RENAL TRANSPLANT
     Dosage: 20 MG, UNK
     Dates: start: 20111107, end: 20111111
  10. AMPHOTERICIN B [Concomitant]
     Indication: PROPHYLAXIS
     Dosage: 100 MG/ 6 X D
     Dates: start: 20111109
  11. AMLODIPINE [Concomitant]
     Indication: HYPERTENSION
     Dosage: UNK

REACTIONS (3)
  - BLOOD CREATININE INCREASED [None]
  - DIARRHOEA [None]
  - BONE MARROW TOXICITY [None]
